FAERS Safety Report 9855638 (Version 1)
Quarter: 2014Q1

REPORT INFORMATION
  Report Type: Spontaneous
  Country: ES (occurrence: ES)
  Receive Date: 20140130
  Receipt Date: 20140130
  Transmission Date: 20141002
  Serious: Yes (Hospitalization)
  Sender: FDA-Public Use
  Company Number: ES-SHIRE-ALL1-2014-00478

PATIENT
  Age: 85 Year
  Sex: Female

DRUGS (2)
  1. XAGRID [Suspect]
     Indication: PRODUCT USED FOR UNKNOWN INDICATION
     Dosage: 1 MG, 2X/DAY:BID (2 TABLETS PER DAY EXCEPT THURSDAYS AND SUNDAYS))
     Route: 048
     Dates: start: 201202
  2. XAGRID [Suspect]
     Dosage: 1 MG, 1X/DAY:QD (ON THURSDAYS AND SUNDAYS)
     Dates: start: 201202

REACTIONS (2)
  - Subdural haemorrhage [Unknown]
  - Paraparesis [Unknown]
